FAERS Safety Report 4372083-9 (Version None)
Quarter: 2004Q2

REPORT INFORMATION
  Report Type: 
  Country: None (occurrence: None)
  Receive Date: 20040602
  Receipt Date: 20040518
  Transmission Date: 20050107
  Serious: Yes (Death, Hospitalization)
  Sender: FDA-Public Use
  Company Number: JP-JNJFOC-20040506501

PATIENT
  Age: 34 Year
  Sex: Female
  Weight: 41 kg

DRUGS (8)
  1. REMICADE [Suspect]
     Indication: CROHN'S DISEASE
     Dosage: 5 MG/KG, 1 IN 1 AS NECESSARY, INTRAVENOUS DRIP
     Route: 041
     Dates: start: 20030529, end: 20030529
  2. REMICADE [Suspect]
     Indication: CROHN'S DISEASE
     Dosage: 5 MG/KG, 1 IN 1 AS NECESSARY, INTRAVENOUS DRIP
     Route: 041
     Dates: start: 20030619, end: 20030619
  3. REMICADE [Suspect]
     Indication: CROHN'S DISEASE
     Dosage: 5 MG/KG, 1 IN 1 AS NECESSARY, INTRAVENOUS DRIP
     Route: 041
     Dates: start: 20030729, end: 20030729
  4. PREDNISOLONE [Suspect]
     Indication: CROHN'S DISEASE
     Dosage: INTRAVENOUS
     Route: 042
  5. MEROPEN (MEROPENEM) [Suspect]
     Dosage: INTRAVENOUS
     Route: 042
  6. PENTASA (TABLETS) MESALAZINE [Concomitant]
  7. VENOLIN GAMMA GLOBULIN (UNKNOWN) ALL OTHER THERAPEUTIC PRODUCTS [Concomitant]
  8. TOTAL PARENTERAL NUTRITION (POLYVINYL ALCOHOL) [Concomitant]

REACTIONS (7)
  - BILE DUCT STONE [None]
  - CYTOMEGALOVIRUS INFECTION [None]
  - DRUG EFFECT DECREASED [None]
  - DRUG INTERACTION [None]
  - INTERSTITIAL LUNG DISEASE [None]
  - MELAENA [None]
  - SEPSIS [None]
